FAERS Safety Report 25575957 (Version 1)
Quarter: 2025Q3

REPORT INFORMATION
  Report Type: Spontaneous
  Country: CA (occurrence: CA)
  Receive Date: 20250718
  Receipt Date: 20250718
  Transmission Date: 20251020
  Serious: Yes (Hospitalization)
  Sender: ROCHE
  Company Number: CA-ROCHE-10000340393

PATIENT
  Age: 67 Year
  Sex: Female

DRUGS (1)
  1. OCREVUS [Suspect]
     Active Substance: OCRELIZUMAB
     Indication: Multiple sclerosis
     Route: 042
     Dates: start: 20190402

REACTIONS (1)
  - Contusion [Not Recovered/Not Resolved]

NARRATIVE: CASE EVENT DATE: 20250711
